FAERS Safety Report 5641763-7 (Version None)
Quarter: 2008Q1

REPORT INFORMATION
  Report Type: 
  Country: None (occurrence: None)
  Receive Date: 20080227
  Receipt Date: 20080219
  Transmission Date: 20080703
  Serious: Yes (Hospitalization)
  Sender: FDA-Public Use
  Company Number: US-TYCO HEALTHCARE/MALLINCKRODT-T200800245

PATIENT

DRUGS (1)
  1. OPTIRAY 300 [Suspect]
     Dates: start: 20080217, end: 20080217

REACTIONS (1)
  - ANAPHYLACTIC REACTION [None]
